FAERS Safety Report 25577002 (Version 1)
Quarter: 2025Q3

REPORT INFORMATION
  Report Type: Spontaneous
  Country: US (occurrence: US)
  Receive Date: 20250718
  Receipt Date: 20250718
  Transmission Date: 20251021
  Serious: Yes (Other)
  Sender: MYLAN
  Company Number: US-MYLANLABS-2025M1059424

PATIENT
  Age: 67 Year
  Sex: Male

DRUGS (12)
  1. DOXAZOSIN [Suspect]
     Active Substance: DOXAZOSIN MESYLATE
     Indication: Sleep disorder
  2. DOXAZOSIN [Suspect]
     Active Substance: DOXAZOSIN MESYLATE
     Route: 065
  3. DOXAZOSIN [Suspect]
     Active Substance: DOXAZOSIN MESYLATE
     Route: 065
  4. DOXAZOSIN [Suspect]
     Active Substance: DOXAZOSIN MESYLATE
  5. PRAZOSIN [Suspect]
     Active Substance: PRAZOSIN
     Indication: Sleep disorder
  6. PRAZOSIN [Suspect]
     Active Substance: PRAZOSIN
     Route: 065
  7. PRAZOSIN [Suspect]
     Active Substance: PRAZOSIN
     Route: 065
  8. PRAZOSIN [Suspect]
     Active Substance: PRAZOSIN
  9. MELATONIN [Concomitant]
     Active Substance: MELATONIN
     Indication: Sleep disorder
  10. MELATONIN [Concomitant]
     Active Substance: MELATONIN
     Route: 065
  11. MELATONIN [Concomitant]
     Active Substance: MELATONIN
     Route: 065
  12. MELATONIN [Concomitant]
     Active Substance: MELATONIN

REACTIONS (2)
  - Therapy non-responder [Unknown]
  - Off label use [Unknown]
